FAERS Safety Report 5240203-X (Version None)
Quarter: 2007Q1

REPORT INFORMATION
  Report Type: 
  Country: None (occurrence: None)
  Receive Date: 20061201
  Receipt Date: 20060918
  Transmission Date: 20070707
  Serious: No
  Sender: FDA-Public Use
  Company Number: 2006PV021462

PATIENT
  Age: 54 Year
  Sex: Female
  Weight: 136.0791 kg

DRUGS (8)
  1. BYETTA [Suspect]
     Indication: DIABETES MELLITUS NON-INSULIN-DEPENDENT
     Dosage: SEE IMAGE
     Route: 058
     Dates: start: 20060601, end: 20060101
  2. BYETTA [Suspect]
     Indication: DIABETES MELLITUS NON-INSULIN-DEPENDENT
     Dosage: SEE IMAGE
     Route: 058
     Dates: start: 20060701, end: 20060701
  3. BYETTA [Suspect]
     Indication: DIABETES MELLITUS NON-INSULIN-DEPENDENT
     Dosage: SEE IMAGE
     Route: 058
     Dates: start: 20060101
  4. AMARYL [Concomitant]
  5. AVANDARYL [Concomitant]
  6. CHROMIUM PICOLINATE [Concomitant]
  7. DIOVAN [Concomitant]
  8. NEXIUM [Concomitant]

REACTIONS (4)
  - FEELING JITTERY [None]
  - NAUSEA [None]
  - PARAESTHESIA [None]
  - WEIGHT DECREASED [None]
